FAERS Safety Report 7299719-7 (Version None)
Quarter: 2011Q1

REPORT INFORMATION
  Report Type: 
  Country: None (occurrence: None)
  Receive Date: 20110217
  Receipt Date: 20101222
  Transmission Date: 20110831
  Serious: Yes (Other)
  Sender: FDA-Public Use
  Company Number: US-BAYER-201041975NA

PATIENT
  Sex: Female
  Weight: 73 kg

DRUGS (9)
  1. YAZ [Suspect]
     Indication: ACNE
     Dosage: UNK
     Route: 048
     Dates: start: 20080626, end: 20081101
  2. VERAPAMIL [Concomitant]
  3. YAZ [Suspect]
     Indication: CONTRACEPTION
  4. TOPAMAX [Concomitant]
     Indication: MIGRAINE
  5. YAZ [Suspect]
     Indication: PREMENSTRUAL SYNDROME
  6. EFFEXOR XR [Concomitant]
     Dosage: 75 MG, QD
     Route: 048
  7. TOPAMAX [Concomitant]
     Indication: PAIN
     Dosage: UNK
     Dates: start: 20000101
  8. SUMATRIPTAN [Concomitant]
     Indication: MIGRAINE
     Dosage: 6 MG, QD
     Route: 058
  9. INDERAL [Concomitant]

REACTIONS (2)
  - GALLBLADDER DISORDER [None]
  - ABDOMINAL PAIN LOWER [None]
